FAERS Safety Report 18504508 (Version 1)
Quarter: 2020Q4

REPORT INFORMATION
  Report Type: Report from Study
  Country: CO (occurrence: CO)
  Receive Date: 20201114
  Receipt Date: 20201114
  Transmission Date: 20210114
  Serious: Yes (Other)
  Sender: FDA-Public Use
  Company Number: NVSC2020CO300627

PATIENT
  Sex: Female
  Weight: 96 kg

DRUGS (2)
  1. DIOVAN [Suspect]
     Active Substance: VALSARTAN
     Indication: HYPERTENSION
     Dosage: 12.5 MG, QD (STARTED 8 YERAS AGO)
     Route: 048
     Dates: end: 20201031
  2. LEVOTHYROXINE. [Concomitant]
     Active Substance: LEVOTHYROXINE
     Indication: THYROID DISORDER
     Dosage: 75 MG, QD
     Route: 048

REACTIONS (4)
  - Diabetes mellitus [Unknown]
  - Incorrect dose administered [Unknown]
  - Metastases to spine [Unknown]
  - Product supply issue [Unknown]
